FAERS Safety Report 11916513 (Version 1)
Quarter: 2016Q1

REPORT INFORMATION
  Report Type: Spontaneous
  Country: FR (occurrence: FR)
  Receive Date: 20160114
  Receipt Date: 20160114
  Transmission Date: 20160526
  Serious: Yes (Hospitalization)
  Sender: FDA-Public Use
  Company Number: PHHY2016FR001324

PATIENT
  Age: 45 Year
  Sex: Male

DRUGS (5)
  1. LORATADINE. [Suspect]
     Active Substance: LORATADINE
     Indication: PRODUCT USED FOR UNKNOWN INDICATION
     Dosage: UNK, (INGESTED PRESUMED DOSE)
     Route: 048
     Dates: start: 20141109
  2. LEXOMIL [Suspect]
     Active Substance: BROMAZEPAM
     Indication: PRODUCT USED FOR UNKNOWN INDICATION
     Dosage: 180 MG, UNK (INGESTED PRESUMED DOSE)
     Route: 048
     Dates: start: 20141109
  3. OFLOCET [Suspect]
     Active Substance: OFLOXACIN
     Indication: PRODUCT USED FOR UNKNOWN INDICATION
     Dosage: UNK,(INGESTED PRESUMED DOSE)
     Route: 048
     Dates: start: 20141109
  4. BACLOFEN. [Suspect]
     Active Substance: BACLOFEN
     Indication: PRODUCT USED FOR UNKNOWN INDICATION
     Dosage: UNK, INGESTED PRESUMED DOSE
     Route: 048
     Dates: start: 20141109
  5. NORVIR [Suspect]
     Active Substance: RITONAVIR
     Indication: PRODUCT USED FOR UNKNOWN INDICATION
     Dosage: UNK,(INGESTED PRESUMED DOSE)
     Route: 048
     Dates: start: 20141109

REACTIONS (3)
  - Coma [Recovered/Resolved]
  - Respiratory disorder [Recovered/Resolved]
  - Hypothermia [Recovered/Resolved]

NARRATIVE: CASE EVENT DATE: 20141109
